FAERS Safety Report 20557493 (Version 1)
Quarter: 2022Q1

REPORT INFORMATION
  Report Type: Spontaneous
  Country: US (occurrence: None)
  Receive Date: 20220307
  Receipt Date: 20220307
  Transmission Date: 20220424
  Serious: Yes (Other)
  Sender: FDA-Public Use
  Company Number: US-ROCHE-3037953

PATIENT
  Sex: Female

DRUGS (1)
  1. ESBRIET [Suspect]
     Active Substance: PIRFENIDONE
     Indication: Interstitial lung disease
     Dosage: TWICE DAILY; ONGOING: YES
     Route: 048
     Dates: start: 202109

REACTIONS (3)
  - Diarrhoea [Unknown]
  - Gastric ulcer [Unknown]
  - Off label use [Unknown]
